FAERS Safety Report 23505915 (Version 1)
Quarter: 2024Q1

REPORT INFORMATION
  Report Type: Spontaneous
  Country: US (occurrence: None)
  Receive Date: 20240208
  Receipt Date: 20240208
  Transmission Date: 20240410
  Serious: Yes (Other)
  Sender: FDA-Public Use
  Company Number: None

PATIENT
  Age: 62 Year
  Sex: Female
  Weight: 53 kg

DRUGS (2)
  1. NIMODIPINE [Suspect]
     Active Substance: NIMODIPINE
  2. TACROLIMUS [Concomitant]
     Active Substance: TACROLIMUS
     Dates: start: 20240124

REACTIONS (2)
  - Drug level increased [None]
  - Drug interaction [None]

NARRATIVE: CASE EVENT DATE: 20240207
